FAERS Safety Report 8608152 (Version 3)
Quarter: 2012Q4

REPORT INFORMATION
  Report Type: 
  Country: US (occurrence: US)
  Receive Date: 20120611
  Receipt Date: 20120828
  Transmission Date: 20130627
  Serious: No
  Sender: FDA-Public Use
  Company Number: US-PFIZER INC-2012135290

PATIENT
  Age: 58 Year
  Sex: Female
  Weight: 81.63 kg

DRUGS (1)
  1. PREMARIN VAGINAL CREAM [Suspect]
     Indication: VULVOVAGINAL DRYNESS
     Dosage: UNK, 2x/day
     Route: 067
     Dates: start: 20120521, end: 2012

REACTIONS (2)
  - Vulvovaginal swelling [Recovered/Resolved]
  - Vulvovaginal pruritus [Recovered/Resolved]
